FAERS Safety Report 24530241 (Version 1)
Quarter: 2024Q4

REPORT INFORMATION
  Report Type: Spontaneous
  Country: US (occurrence: US)
  Receive Date: 20241021
  Receipt Date: 20241021
  Transmission Date: 20250115
  Serious: Yes (Hospitalization, Other)
  Sender: ELITE
  Company Number: US-ELITEPHARMA-2024ELLIT00237

PATIENT
  Age: 28 Year
  Sex: Female

DRUGS (1)
  1. NALTREXONE [Suspect]
     Active Substance: NALTREXONE
     Indication: Alcohol use disorder
     Route: 030

REACTIONS (2)
  - Eosinophilic pneumonia acute [Recovered/Resolved]
  - Product use issue [Unknown]
